FAERS Safety Report 21782064 (Version 1)
Quarter: 2022Q4

REPORT INFORMATION
  Report Type: Spontaneous
  Country: US (occurrence: None)
  Receive Date: 20221224
  Receipt Date: 20221224
  Transmission Date: 20230113
  Serious: Yes (Other)
  Sender: FDA-Public Use
  Company Number: None

PATIENT
  Age: 68 Year
  Sex: Male
  Weight: 74.25 kg

DRUGS (1)
  1. PAXLOVID [Suspect]
     Active Substance: NIRMATRELVIR\RITONAVIR
     Indication: COVID-19
     Dates: start: 20221208, end: 20221213

REACTIONS (3)
  - COVID-19 [None]
  - Rebound effect [None]
  - SARS-CoV-2 test positive [None]

NARRATIVE: CASE EVENT DATE: 20221223
